FAERS Safety Report 8933845 (Version 2)
Quarter: 2012Q4

REPORT INFORMATION
  Report Type: 
  Country: GB (occurrence: GB)
  Receive Date: 20121129
  Receipt Date: 20121224
  Transmission Date: 20130627
  Serious: Yes (Other)
  Sender: FDA-Public Use
  Company Number: GB-UCBSA-071660

PATIENT
  Age: 63 Year
  Sex: Female

DRUGS (1)
  1. CIMZIA [Suspect]
     Dosage: UNKNOWN DOSE
     Dates: start: 201201

REACTIONS (1)
  - Rash generalised [Unknown]
